FAERS Safety Report 7463581-X (Version None)
Quarter: 2011Q2

REPORT INFORMATION
  Report Type: 
  Country: None (occurrence: None)
  Receive Date: 20110506
  Receipt Date: 20110505
  Transmission Date: 20111010
  Serious: Yes (Other)
  Sender: FDA-Public Use
  Company Number: RU-EISAI INC-E2020-08659-CLI-RU

PATIENT
  Sex: Female
  Weight: 56 kg

DRUGS (6)
  1. ARICEPT [Suspect]
     Route: 048
     Dates: start: 20101124, end: 20110129
  2. MEXIDOL [Concomitant]
     Indication: DIZZINESS
     Dates: start: 20101224
  3. INDAPAMIDE [Concomitant]
     Dates: start: 20050615
  4. FOSINOPRIL SODIUM [Concomitant]
     Dates: start: 20101224
  5. BETAHISTINE [Concomitant]
     Indication: DIZZINESS
     Dates: start: 20101224
  6. METOPROLOL TARTRATE [Concomitant]
     Dates: start: 20101224

REACTIONS (1)
  - WHITE BLOOD CELL COUNT DECREASED [None]
